FAERS Safety Report 10172964 (Version 2)
Quarter: 2014Q2

REPORT INFORMATION
  Report Type: Spontaneous
  Country: US (occurrence: US)
  Receive Date: 20140515
  Receipt Date: 20140521
  Transmission Date: 20141212
  Serious: Yes (Other)
  Sender: FDA-Public Use
  Company Number: US-LUNDBECK-DKLU1099846

PATIENT
  Sex: Female

DRUGS (1)
  1. SABRIL (FOR ORAL SOLUTION) [Suspect]
     Indication: CONVULSION
     Route: 048
     Dates: start: 20140410

REACTIONS (1)
  - Infantile spasms [Unknown]
